FAERS Safety Report 8286078-6 (Version None)
Quarter: 2012Q2

REPORT INFORMATION
  Report Type: 
  Country: None (occurrence: None)
  Receive Date: 20120416
  Receipt Date: 20120405
  Transmission Date: 20120825
  Serious: Yes (Hospitalization)
  Sender: FDA-Public Use
  Company Number: US-BIOGENIDEC-2012BI010430

PATIENT
  Age: 28 Year
  Sex: Female

DRUGS (5)
  1. TRAZODONE HCL [Concomitant]
     Indication: INSOMNIA
  2. PROTONIX [Concomitant]
     Indication: PROPHYLAXIS
     Route: 048
  3. LOVENOX [Concomitant]
     Route: 048
  4. TYSABRI [Suspect]
     Indication: MULTIPLE SCLEROSIS
     Route: 042
     Dates: start: 20110901
  5. LAMICTAL [Concomitant]
     Indication: BIPOLAR DISORDER
     Route: 048

REACTIONS (7)
  - INSOMNIA [None]
  - MULTIPLE SCLEROSIS RELAPSE [None]
  - DIZZINESS [None]
  - VITAMIN B12 DECREASED [None]
  - VITAMIN D DECREASED [None]
  - GAIT DISTURBANCE [None]
  - FATIGUE [None]
